FAERS Safety Report 25934552 (Version 1)
Quarter: 2025Q4

REPORT INFORMATION
  Report Type: Spontaneous
  Country: US (occurrence: None)
  Receive Date: 20251016
  Receipt Date: 20251016
  Transmission Date: 20260118
  Serious: Yes (Hospitalization)
  Sender: FDA-CTU
  Company Number: None

PATIENT
  Sex: Male

DRUGS (2)
  1. WINREVAIR [Suspect]
     Active Substance: SOTATERCEPT-CSRK
     Indication: Pulmonary hypertension
     Dosage: OTHER FREQUENCY : EVERY 3 WEEKS;?
     Route: 058
     Dates: start: 20250428
  2. TREPROSTINIL DIOLAMINE [Concomitant]
     Active Substance: TREPROSTINIL DIOLAMINE

REACTIONS (11)
  - Chest pain [None]
  - COVID-19 [None]
  - Foot fracture [None]
  - Headache [None]
  - Pain [None]
  - Pain in extremity [None]
  - Fatigue [None]
  - Nausea [None]
  - Diarrhoea [None]
  - Abdominal discomfort [None]
  - Flushing [None]
